FAERS Safety Report 5397728-6 (Version None)
Quarter: 2007Q3

REPORT INFORMATION
  Report Type: 
  Country: None (occurrence: None)
  Receive Date: 20070723
  Receipt Date: 20070723
  Transmission Date: 20080115
  Serious: Yes (Other)
  Sender: FDA-Public Use
  Company Number: None

PATIENT
  Age: 19 Year
  Sex: Female
  Weight: 63.5036 kg

DRUGS (1)
  1. MIRENA [Suspect]
     Indication: CONTRACEPTION
     Dosage: 1  CONSTANT ENDOCERVICA
     Route: 005
     Dates: start: 20061212, end: 20070623

REACTIONS (2)
  - PHARMACEUTICAL PRODUCT COMPLAINT [None]
  - PREGNANCY WITH CONTRACEPTIVE DEVICE [None]
